FAERS Safety Report 21267557 (Version 2)
Quarter: 2022Q4

REPORT INFORMATION
  Report Type: Spontaneous
  Country: US (occurrence: US)
  Receive Date: 20220829
  Receipt Date: 20221213
  Transmission Date: 20230113
  Serious: No
  Sender: FDA-Public Use
  Company Number: US-PADAGIS-2022PAD00472

PATIENT

DRUGS (2)
  1. IMIQUIMOD [Suspect]
     Active Substance: IMIQUIMOD
     Indication: Papilloma viral infection
     Dosage: UNK
     Route: 061
  2. IMIQUIMOD [Suspect]
     Active Substance: IMIQUIMOD
     Dosage: TID ( THREE TIMES WEEKLY FOR 12 WEEKS)
     Route: 061

REACTIONS (4)
  - Vulvovaginal discomfort [Unknown]
  - Skin ulcer [None]
  - Product use issue [Unknown]
  - Product use in unapproved indication [Unknown]
